FAERS Safety Report 4488230-4 (Version None)
Quarter: 2004Q4

REPORT INFORMATION
  Report Type: 
  Country: None (occurrence: None)
  Receive Date: 20041028
  Receipt Date: 20040827
  Transmission Date: 20050328
  Serious: Yes (Hospitalization, Disabling)
  Sender: FDA-Public Use
  Company Number: PHFR2004GB03344

PATIENT
  Age: 33 Year
  Sex: Male
  Weight: 63 kg

DRUGS (4)
  1. NEORAL [Suspect]
     Indication: PSORIASIS
     Dosage: 225 MG, BID
     Route: 048
     Dates: start: 20040101, end: 20040801
  2. NEORAL [Suspect]
     Dosage: 125 MG, BID
     Route: 048
  3. NEORAL [Suspect]
     Dosage: 100 MG, QD
     Route: 048
     Dates: end: 20040811
  4. ACITRETIN [Concomitant]
     Indication: PSORIASIS
     Dosage: 60 MG, QD
     Route: 048
     Dates: end: 20040820

REACTIONS (10)
  - ARTHRALGIA [None]
  - ASTHENIA [None]
  - BACK PAIN [None]
  - BEDRIDDEN [None]
  - BLOOD PRESSURE INCREASED [None]
  - BLOOD PRESSURE SYSTOLIC INCREASED [None]
  - ELECTROMYOGRAM ABNORMAL [None]
  - MUSCULAR WEAKNESS [None]
  - MYOPATHY [None]
  - PAIN IN EXTREMITY [None]
